FAERS Safety Report 7587895-8 (Version None)
Quarter: 2011Q3

REPORT INFORMATION
  Report Type: 
  Country: None (occurrence: None)
  Receive Date: 20110705
  Receipt Date: 20110627
  Transmission Date: 20111222
  Serious: No
  Sender: FDA-Public Use
  Company Number: US-BIOGENIDEC-2011BI023740

PATIENT
  Sex: Female

DRUGS (1)
  1. TYSABRI [Suspect]
     Indication: PRODUCT USED FOR UNKNOWN INDICATION
     Route: 042
     Dates: start: 20110601

REACTIONS (7)
  - MOTOR DYSFUNCTION [None]
  - WHITE BLOOD CELL COUNT INCREASED [None]
  - ABASIA [None]
  - TREMOR [None]
  - URINARY TRACT INFECTION [None]
  - SHOCK [None]
  - PYREXIA [None]
